FAERS Safety Report 19872158 (Version 1)
Quarter: 2021Q3

REPORT INFORMATION
  Report Type: Spontaneous
  Country: US (occurrence: US)
  Receive Date: 20210923
  Receipt Date: 20210923
  Transmission Date: 20211014
  Serious: No
  Sender: FDA-Public Use
  Company Number: None

PATIENT
  Age: 42 Year
  Sex: Female
  Weight: 102 kg

DRUGS (1)
  1. BARICITNIB (BARICITINIB 2MG TAB) [Suspect]
     Active Substance: BARICITINIB
     Indication: UPPER RESPIRATORY TRACT INFECTION
     Route: 048
     Dates: start: 20210905, end: 20210916

REACTIONS (1)
  - Pulmonary embolism [None]

NARRATIVE: CASE EVENT DATE: 20210913
